FAERS Safety Report 18891302 (Version 1)
Quarter: 2021Q1

REPORT INFORMATION
  Report Type: Spontaneous
  Country: US (occurrence: US)
  Receive Date: 20210215
  Receipt Date: 20210215
  Transmission Date: 20210420
  Serious: No
  Sender: FDA-Public Use
  Company Number: US-TEVA-2021-US-1871044

PATIENT
  Sex: Female
  Weight: 65.9 kg

DRUGS (16)
  1. AUSTEDO [Suspect]
     Active Substance: DEUTETRABENAZINE
     Indication: TARDIVE DYSKINESIA
     Dosage: 24 MILLIGRAM DAILY;
     Route: 048
     Dates: start: 202008
  2. MAGNESIUM 250 MG TABLET [Concomitant]
  3. LOSARTAN?HYDROCHLOROTHIAZIDE [Concomitant]
     Active Substance: HYDROCHLOROTHIAZIDE\LOSARTAN
  4. ROSUVASTATIN CALCIUM 5 MG TABLET [Concomitant]
  5. TAMOXIFEN CITRATE 20 MG TABLET [Concomitant]
  6. ALENDRONATE SODIUM 70 MG [Concomitant]
     Active Substance: ALENDRONATE SODIUM
  7. NORVASC [Concomitant]
     Active Substance: AMLODIPINE BESYLATE
  8. VITAMIN D3 100000/G POWDER [Concomitant]
  9. ADVAIR DISKUS 250?50 MCG BLST W/DEV [Concomitant]
  10. DOXYCYCLINE HYCLATE 100 MG [Concomitant]
     Active Substance: DOXYCYCLINE HYCLATE
  11. OMEPRAZOLE 40 MG CAPSULE DR [Concomitant]
  12. AUSTEDO [Suspect]
     Active Substance: DEUTETRABENAZINE
     Dosage: 18 MILLIGRAM DAILY; 1 TABLET 6 MG + 1 TABLET 12 MG (18) MG EVERY MORNING
     Route: 048
  13. VOLTAREN ARTHRITIS PAIN [Concomitant]
     Active Substance: DICLOFENAC SODIUM
  14. CALCIUM 600 + VIT D [Concomitant]
  15. TRAMADOL HCL 50 MG TABLET [Concomitant]
  16. AUSTEDO [Suspect]
     Active Substance: DEUTETRABENAZINE
     Dosage: 6 MILLIGRAM DAILY; 6 MG TAB ?1 TABLET EVERY MORNING
     Route: 048

REACTIONS (1)
  - Tremor [Unknown]
